FAERS Safety Report 10504852 (Version 2)
Quarter: 2014Q4

REPORT INFORMATION
  Report Type: Spontaneous
  Country: US (occurrence: None)
  Receive Date: 20140929
  Receipt Date: 20141224
  Transmission Date: 20150528
  Serious: Yes (Hospitalization)
  Sender: FDA-Public Use
  Company Number: US-2014-12100

PATIENT
  Age: 28 Year
  Sex: Female
  Weight: 48.5 kg

DRUGS (4)
  1. ABILIFY [Concomitant]
     Active Substance: ARIPIPRAZOLE
  2. ABILIFY MAINTENA [Suspect]
     Active Substance: ARIPIPRAZOLE
     Indication: BIPOLAR II DISORDER
     Dosage: 300 MG MILLIGRAM(S), GM, IM (DEPOT)
     Route: 030
     Dates: start: 20140731
  3. KLONOPIN [Concomitant]
     Active Substance: CLONAZEPAM
  4. EFFEXOR (VENLAFAXINE HYDROCHLORIDE) [Concomitant]

REACTIONS (2)
  - Product use issue [None]
  - Anxiety [None]

NARRATIVE: CASE EVENT DATE: 20140731
